FAERS Safety Report 4377226-9 (Version None)
Quarter: 2004Q2

REPORT INFORMATION
  Report Type: 
  Country: None (occurrence: None)
  Receive Date: 20040609
  Receipt Date: 20040319
  Transmission Date: 20050107
  Serious: No
  Sender: FDA-Public Use
  Company Number: 2004205648US

PATIENT
  Age: 56 Year
  Sex: Female

DRUGS (3)
  1. BEXTRA [Suspect]
     Indication: OSTEOARTHRITIS
     Dosage: 10 MG, BID, UNK
     Route: 065
     Dates: start: 20040304, end: 20040306
  2. TYLENOL PM [Concomitant]
  3. IBUPROFEN [Concomitant]

REACTIONS (2)
  - FATIGUE [None]
  - IRRITABILITY [None]
